FAERS Safety Report 7006429-X (Version None)
Quarter: 2010Q3

REPORT INFORMATION
  Report Type: 
  Country: None (occurrence: None)
  Receive Date: 20100910
  Receipt Date: 20100901
  Transmission Date: 20110219
  Serious: Yes (Hospitalization)
  Sender: FDA-Public Use
  Company Number: 2010SP047398

PATIENT
  Age: 69 Year
  Sex: Female
  Weight: 41.2 kg

DRUGS (2)
  1. PEG-INTRON [Suspect]
     Indication: HEPATITIS C
     Dosage: SC
     Route: 058
     Dates: start: 20090701
  2. REBETOL [Suspect]
     Indication: HEPATITIS C
     Dosage: PO
     Route: 048
     Dates: start: 20090701

REACTIONS (2)
  - ACUTE INTERSTITIAL PNEUMONITIS [None]
  - DIABETIC KETOACIDOSIS [None]
